FAERS Safety Report 25948724 (Version 1)
Quarter: 2025Q4

REPORT INFORMATION
  Report Type: Spontaneous
  Country: US (occurrence: US)
  Receive Date: 20251022
  Receipt Date: 20251022
  Transmission Date: 20260118
  Serious: No
  Sender: SANOFI AVENTIS
  Company Number: US-SANOFI-02692966

PATIENT
  Age: 8 Month

DRUGS (1)
  1. BEYFORTUS [Suspect]
     Active Substance: NIRSEVIMAB-ALIP
     Indication: Antiviral prophylaxis
     Dosage: UNK
     Dates: start: 202503, end: 202503

REACTIONS (1)
  - Myopathy [Unknown]

NARRATIVE: CASE EVENT DATE: 20250101
